FAERS Safety Report 7878681-X (Version None)
Quarter: 2011Q4

REPORT INFORMATION
  Report Type: 
  Country: None (occurrence: None)
  Receive Date: 20111018
  Receipt Date: 20110411
  Transmission Date: 20120403
  Serious: Yes (Other)
  Sender: FDA-Public Use
  Company Number: 2011P1005909

PATIENT
  Age: 44 Year
  Sex: Female
  Weight: 100.2449 kg

DRUGS (11)
  1. PRILOSEC [Concomitant]
  2. FISH OIL [Concomitant]
  3. BUSPAR [Concomitant]
  4. TOPAMAX [Concomitant]
  5. FENTANYL [Suspect]
     Indication: SPINAL LAMINECTOMY
     Dosage: 1 PATCH Q3D;TDER
     Route: 062
     Dates: start: 20110201, end: 20110301
  6. FENTANYL [Suspect]
     Indication: NEUROPATHY PERIPHERAL
     Dosage: 1 PATCH Q3D;TDER
     Route: 062
     Dates: start: 20110201, end: 20110301
  7. FENTANYL [Suspect]
     Indication: SPINAL LAMINECTOMY
     Dosage: 1 PATCH Q3D;TDER
     Route: 062
     Dates: start: 20110401
  8. FENTANYL [Suspect]
     Indication: NEUROPATHY PERIPHERAL
     Dosage: 1 PATCH Q3D;TDER
     Route: 062
     Dates: start: 20110401
  9. CELEXA [Concomitant]
  10. AMBIEN [Concomitant]
  11. AMITRIPTYLINE HCL [Concomitant]

REACTIONS (5)
  - SCAB [None]
  - APPLICATION SITE VESICLES [None]
  - APPLICATION SITE ERYTHEMA [None]
  - PRODUCT SUBSTITUTION ISSUE [None]
  - APPLICATION SITE PAIN [None]
